FAERS Safety Report 9417870 (Version 1)
Quarter: 2013Q3

REPORT INFORMATION
  Report Type: Spontaneous
  Country: US (occurrence: US)
  Receive Date: 20130724
  Receipt Date: 20130724
  Transmission Date: 20140515
  Serious: No
  Sender: FDA-Public Use
  Company Number: US-BAUSCH-BL-2012-001843

PATIENT
  Age: 79 Year
  Sex: Male
  Weight: 68.1 kg

DRUGS (1)
  1. OPCON-A [Suspect]
     Indication: PRODUCT USED FOR UNKNOWN INDICATION
     Dosage: DROPS, OPHTHALMIC
     Route: 047
     Dates: start: 20121029, end: 20121029

REACTIONS (1)
  - Eye irritation [Unknown]
